FAERS Safety Report 11201549 (Version 1)
Quarter: 2015Q2

REPORT INFORMATION
  Report Type: Spontaneous
  Country: US (occurrence: US)
  Receive Date: 20150619
  Receipt Date: 20150619
  Transmission Date: 20150821
  Serious: No
  Sender: FDA-Public Use
  Company Number: US-ASTRAZENECA-2015SE56854

PATIENT
  Age: 68 Year
  Sex: Female

DRUGS (1)
  1. FARXIGA [Suspect]
     Active Substance: DAPAGLIFLOZIN PROPANEDIOL
     Route: 048
     Dates: start: 20150608

REACTIONS (2)
  - Oropharyngeal pain [Unknown]
  - Tonsillitis [Unknown]

NARRATIVE: CASE EVENT DATE: 20150608
